FAERS Safety Report 18873000 (Version 2)
Quarter: 2022Q1

REPORT INFORMATION
  Report Type: Report from Study
  Country: US (occurrence: None)
  Receive Date: 20210210
  Receipt Date: 20220117
  Transmission Date: 20220423
  Serious: Yes (Other)
  Sender: FDA-Public Use
  Company Number: US-ROCHE-2763989

PATIENT
  Age: 43 Year
  Sex: Female
  Weight: 56.5 kg

DRUGS (1)
  1. ATEZOLIZUMAB [Suspect]
     Active Substance: ATEZOLIZUMAB
     Indication: Squamous cell carcinoma of the cervix
     Dosage: 27/JUL/2020
     Route: 041
     Dates: start: 20200706

REACTIONS (1)
  - Anaemia [Unknown]
